FAERS Safety Report 8813079 (Version 1)
Quarter: 2012Q4

REPORT INFORMATION
  Report Type: Report from Study
  Country: US (occurrence: US)
  Receive Date: 20120927
  Receipt Date: 20120927
  Transmission Date: 20130627
  Serious: Yes (Hospitalization)
  Sender: FDA-Public Use
  Company Number: US-ASTRAZENECA-2012SE73696

PATIENT
  Age: 29536 Day
  Sex: Male

DRUGS (13)
  1. AZD6140 [Suspect]
     Indication: CORONARY ARTERY DISEASE
     Route: 048
     Dates: start: 20120627
  2. PAROXETINE [Concomitant]
     Indication: DEPRESSION
     Route: 048
  3. NITROGLYCERIN [Concomitant]
     Indication: CHEST PAIN
     Route: 048
  4. OMEGA-3 FATTY ACIDS [Concomitant]
     Indication: HYPERLIPIDAEMIA
     Route: 048
  5. TRAZODONE [Concomitant]
     Indication: DEPRESSION
     Route: 048
  6. SIMVASTATIN [Concomitant]
     Indication: HYPERLIPIDAEMIA
     Route: 048
  7. LISINOPRIL [Concomitant]
     Indication: HYPERTENSION
     Route: 048
  8. NIACIN [Concomitant]
     Indication: HYPERLIPIDAEMIA
     Route: 048
  9. INSULIN [Concomitant]
     Indication: TYPE 2 DIABETES MELLITUS
     Route: 058
  10. CARVEDILOL [Concomitant]
     Indication: HYPERTENSION
     Route: 048
  11. EZETIMIBE [Concomitant]
     Indication: HYPERLIPIDAEMIA
     Route: 048
  12. RANITIDINE [Concomitant]
     Indication: GASTROOESOPHAGEAL REFLUX DISEASE
     Route: 048
  13. ASA [Concomitant]
     Route: 048
     Dates: start: 20110627

REACTIONS (1)
  - Bladder neoplasm [Not Recovered/Not Resolved]
